FAERS Safety Report 4342458-2 (Version None)
Quarter: 2004Q1

REPORT INFORMATION
  Report Type: 
  Country: None (occurrence: None)
  Receive Date: 20040213
  Receipt Date: 20031112
  Transmission Date: 20041129
  Serious: Yes (Hospitalization)
  Sender: FDA-Public Use
  Company Number: 347472

PATIENT
  Age: 42 Year
  Sex: Female
  Weight: 93 kg

DRUGS (7)
  1. PEGASYS [Suspect]
     Indication: HEPATITIS C
     Dosage: 90 MG 1 PER WEEK SUBCUTANEOUS
     Route: 058
     Dates: start: 20030730, end: 20030719
  2. COPEGUS [Suspect]
     Indication: HEPATITIS C
     Dosage: 3 DOSE FORM 2 PER DAY ORAL
     Route: 048
     Dates: start: 20030730, end: 20030919
  3. ALEVE [Suspect]
     Indication: HEADACHE
     Dosage: ORAL
     Route: 048
  4. COMBIVIR [Concomitant]
  5. VIREAD [Concomitant]
  6. LEXAPRO [Concomitant]
  7. AMBIEN [Concomitant]

REACTIONS (6)
  - BLOOD DISORDER [None]
  - DIZZINESS [None]
  - FULL BLOOD COUNT DECREASED [None]
  - HEADACHE [None]
  - MIGRAINE [None]
  - SWELLING FACE [None]
